FAERS Safety Report 13032842 (Version 1)
Quarter: 2016Q4

REPORT INFORMATION
  Report Type: Spontaneous
  Country: US (occurrence: US)
  Receive Date: 20161215
  Receipt Date: 20161215
  Transmission Date: 20170207
  Serious: Yes (Death, Other)
  Sender: FDA-Public Use
  Company Number: US-BELCHER PHARMACEUTICALS, LLC-2016VTS00206

PATIENT
  Age: 68 Year
  Sex: Male
  Weight: 70.3 kg

DRUGS (3)
  1. HYOSCYAMINE SULFATE ODT [Suspect]
     Active Substance: HYOSCYAMINE SULFATE
     Indication: RESTLESSNESS
  2. HYOSCYAMINE SULFATE ODT [Suspect]
     Active Substance: HYOSCYAMINE SULFATE
     Indication: PAIN
     Dosage: UNK, 6X/DAY
     Route: 048
     Dates: start: 20160910, end: 20160912
  3. MORPHINE (NON-COMPANY) [Suspect]
     Active Substance: MORPHINE
     Indication: PAIN
     Dosage: UNK, 6X/DAY
     Dates: start: 20160910, end: 20160912

REACTIONS (3)
  - Conversion disorder [Fatal]
  - Cerebrovascular accident [Fatal]
  - Seizure [Fatal]

NARRATIVE: CASE EVENT DATE: 201609
